FAERS Safety Report 21831519 (Version 3)
Quarter: 2023Q2

REPORT INFORMATION
  Report Type: Spontaneous
  Country: US (occurrence: US)
  Receive Date: 20230106
  Receipt Date: 20230512
  Transmission Date: 20230721
  Serious: No
  Sender: FDA-Public Use
  Company Number: US-BRISTOL-MYERS SQUIBB COMPANY-2023-002104

PATIENT
  Age: 61 Year
  Sex: Female
  Weight: 130 kg

DRUGS (2)
  1. ORENCIA [Suspect]
     Active Substance: ABATACEPT
     Indication: Sjogren^s syndrome
     Route: 058
  2. ORENCIA [Suspect]
     Active Substance: ABATACEPT
     Indication: Systemic lupus erythematosus
     Route: 042

REACTIONS (4)
  - Device safety feature issue [Unknown]
  - Off label use [Unknown]
  - Device deployment issue [Unknown]
  - Product use complaint [Unknown]
